FAERS Safety Report 15916910 (Version 1)
Quarter: 2019Q1

REPORT INFORMATION
  Report Type: Spontaneous
  Country: US (occurrence: US)
  Receive Date: 20190205
  Receipt Date: 20190205
  Transmission Date: 20190417
  Serious: No
  Sender: FDA-Public Use
  Company Number: US-TEVA-2019-US-996653

PATIENT
  Age: 67 Year
  Sex: Male

DRUGS (1)
  1. ACTAVIS HYDROCODONE AND ACETAMINOPHEN [Suspect]
     Active Substance: ACETAMINOPHEN\HYDROCODONE
     Route: 065

REACTIONS (1)
  - Drug ineffective [Unknown]
